FAERS Safety Report 8228018-1 (Version None)
Quarter: 2012Q1

REPORT INFORMATION
  Report Type: 
  Country: None (occurrence: None)
  Receive Date: 20120322
  Receipt Date: 20120127
  Transmission Date: 20120608
  Serious: No
  Sender: FDA-Public Use
  Company Number: US-BRISTOL-MYERS SQUIBB COMPANY-16364119

PATIENT
  Sex: Male

DRUGS (2)
  1. ERBITUX [Suspect]
  2. IRINOTECAN HCL [Suspect]

REACTIONS (1)
  - FUNGAL INFECTION [None]
